FAERS Safety Report 9900324 (Version 6)
Quarter: 2014Q4

REPORT INFORMATION
  Report Type: Spontaneous
  Country: US (occurrence: US)
  Receive Date: 20140216
  Receipt Date: 20141217
  Transmission Date: 20150529
  Serious: Yes (Hospitalization, Disabling, Other)
  Sender: FDA-Public Use
  Company Number: US-009507513-1402USA004154

PATIENT
  Sex: Female
  Weight: 57.6 kg

DRUGS (6)
  1. ALENDRONATE SODIUM. [Suspect]
     Active Substance: ALENDRONATE SODIUM
     Indication: OSTEOPENIA
  2. FOSAMAX [Suspect]
     Active Substance: ALENDRONATE SODIUM
     Indication: OSTEOPOROSIS
     Dosage: 70 MG, QW
     Route: 048
     Dates: start: 200306, end: 200802
  3. ALENDRONATE SODIUM. [Suspect]
     Active Substance: ALENDRONATE SODIUM
     Indication: OSTEOPOROSIS
     Dosage: 70 MG, QW
     Dates: start: 20080213, end: 20120209
  4. FOSAMAX [Suspect]
     Active Substance: ALENDRONATE SODIUM
     Indication: OSTEOPENIA
     Dosage: 70 MG, UNK
     Route: 048
     Dates: start: 20050830, end: 20080510
  5. CALCIUM (UNSPECIFIED) (+) CHOLECALCIFEROL [Concomitant]
     Dosage: 600MG-400IU, 2 TABLETS DAILY
     Dates: start: 2003
  6. CENTRUM (MINERALS (UNSPECIFIED) (+) VITAMINS (UNSPECIFIED)) [Concomitant]
     Dosage: UNK, 1 TABLET DAILY
     Dates: start: 1980

REACTIONS (23)
  - Tonsillectomy [Unknown]
  - Surgery [Unknown]
  - Femur fracture [Unknown]
  - Adverse event [Unknown]
  - Open reduction of fracture [Unknown]
  - Scoliosis [Unknown]
  - Vision blurred [Unknown]
  - Procedural complication [Unknown]
  - Impaired healing [Unknown]
  - Femur fracture [Unknown]
  - Ear operation [Unknown]
  - Osteoarthritis [Unknown]
  - Diplopia [Unknown]
  - Tympanic membrane perforation [Unknown]
  - Deafness [Unknown]
  - Hypothyroidism [Not Recovered/Not Resolved]
  - Tympanoplasty [Unknown]
  - Fracture [Unknown]
  - Ovarian cyst [Unknown]
  - Haemorrhagic anaemia [Recovering/Resolving]
  - White blood cell count abnormal [Unknown]
  - Limb asymmetry [Unknown]
  - Low turnover osteopathy [Unknown]

NARRATIVE: CASE EVENT DATE: 200306
